FAERS Safety Report 5528687-0 (Version None)
Quarter: 2007Q4

REPORT INFORMATION
  Report Type: 
  Country: None (occurrence: None)
  Receive Date: 20071129
  Receipt Date: 20071115
  Transmission Date: 20080405
  Serious: Yes (Death, Other)
  Sender: FDA-Public Use
  Company Number: PHBS2007JP19062

PATIENT
  Age: 41 Year
  Sex: Male

DRUGS (4)
  1. NEORAL [Suspect]
     Indication: BRONCHOMALACIA
     Dosage: 100 MG/DAY
     Route: 048
     Dates: start: 20040721, end: 20041012
  2. PREDNISOLONE [Suspect]
     Indication: BRONCHOMALACIA
     Dosage: 45 MG/DAY
     Route: 065
  3. PREDNISOLONE [Suspect]
     Route: 042
  4. METHYLPREDNISOLONE [Suspect]
     Indication: BRONCHOMALACIA
     Dosage: 22 MG/DAY
     Route: 048

REACTIONS (2)
  - BACTERIAL INFECTION [None]
  - PNEUMONIA BACTERIAL [None]
